FAERS Safety Report 25257466 (Version 1)
Quarter: 2025Q2

REPORT INFORMATION
  Report Type: Spontaneous
  Country: BR (occurrence: BR)
  Receive Date: 20250430
  Receipt Date: 20250430
  Transmission Date: 20250717
  Serious: Yes (Death, Hospitalization)
  Sender: BIOMARIN
  Company Number: BR-BIOMARINAP-BR-2025-165540

PATIENT

DRUGS (1)
  1. VIMIZIM [Suspect]
     Active Substance: ELOSULFASE ALFA
     Indication: Mucopolysaccharidosis IV
     Dosage: UNK, QW
     Route: 042

REACTIONS (6)
  - Respiratory failure [Fatal]
  - Spinal cord compression [Unknown]
  - Cyanosis [Unknown]
  - Respiratory distress [Unknown]
  - Obesity [Unknown]
  - Bone deformity [Unknown]

NARRATIVE: CASE EVENT DATE: 20250427
